FAERS Safety Report 10689879 (Version 1)
Quarter: 2015Q1

REPORT INFORMATION
  Report Type: Spontaneous
  Country: US (occurrence: None)
  Receive Date: 20150102
  Receipt Date: 20150102
  Transmission Date: 20150720
  Serious: Yes (Other)
  Sender: FDA-Public Use
  Company Number: None

PATIENT
  Age: 56 Year
  Sex: Female

DRUGS (5)
  1. LISINOPRIL. [Concomitant]
     Active Substance: LISINOPRIL
  2. BACLOFEN. [Concomitant]
     Active Substance: BACLOFEN
  3. DELZICOL [Concomitant]
     Active Substance: MESALAMINE
  4. AUBAGIO [Suspect]
     Active Substance: TERIFLUNOMIDE
     Indication: MULTIPLE SCLEROSIS
     Dosage: 1 TABLET, QD, ORAL
     Route: 048
     Dates: start: 201410
  5. AMANTIDINE [Concomitant]
     Active Substance: AMANTADINE

REACTIONS (4)
  - Decreased appetite [None]
  - Fatigue [None]
  - Seizure [None]
  - Burning sensation [None]
